FAERS Safety Report 4563408-X (Version None)
Quarter: 2005Q1

REPORT INFORMATION
  Report Type: 
  Country: None (occurrence: None)
  Receive Date: 20050128
  Receipt Date: 20040413
  Transmission Date: 20050727
  Serious: Yes (Other)
  Sender: FDA-Public Use
  Company Number: US-GLAXOSMITHKLINE-A0506924A

PATIENT
  Age: 25 Year

DRUGS (3)
  1. WELLBUTRIN [Suspect]
     Indication: DRUG USE FOR UNKNOWN INDICATION
     Dosage: 75MG TWICE PER DAY
     Route: 048
  2. ALCOHOL [Concomitant]
  3. MARIJUANA [Concomitant]

REACTIONS (1)
  - CONVULSION [None]
